FAERS Safety Report 24693446 (Version 1)
Quarter: 2024Q4

REPORT INFORMATION
  Report Type: Report from Study
  Country: CH (occurrence: CH)
  Receive Date: 20241203
  Receipt Date: 20241203
  Transmission Date: 20250115
  Serious: Yes (Death, Other)
  Sender: ABBVIE
  Company Number: CH-ABBVIE-6029384

PATIENT
  Age: 77 Year
  Sex: Female

DRUGS (2)
  1. CARBIDOPA\LEVODOPA [Suspect]
     Active Substance: CARBIDOPA\LEVODOPA
     Indication: Parkinson^s disease
     Dosage: MD: 5.5 ML, CRD: 2.0 ML/H, ED: 2.0 ML?FREQUENCY TEXT: 16H THERAPY
     Route: 050
     Dates: start: 20241029, end: 20241128
  2. CARBIDOPA\LEVODOPA [Suspect]
     Active Substance: CARBIDOPA\LEVODOPA
     Dosage: FREQUENCY TEXT: 16H THERAPY
     Route: 050
     Dates: start: 20210208

REACTIONS (2)
  - Death [Fatal]
  - Palliative care [Unknown]

NARRATIVE: CASE EVENT DATE: 20241128
